FAERS Safety Report 4450488-5 (Version None)
Quarter: 2004Q3

REPORT INFORMATION
  Report Type: 
  Country: None (occurrence: None)
  Receive Date: 20040914
  Receipt Date: 20040901
  Transmission Date: 20050211
  Serious: Yes (Other)
  Sender: FDA-Public Use
  Company Number: 2004-BP-07613BP

PATIENT
  Age: 76 Year
  Sex: Female

DRUGS (3)
  1. CATAPRES [Suspect]
     Indication: HYPERTENSION
     Dosage: 1 PATCH Q WEEK, TO
     Dates: start: 20040101
  2. PROCARDIA [Concomitant]
  3. ISORDIL [Concomitant]

REACTIONS (7)
  - APPLICATION SITE DERMATITIS [None]
  - DERMATITIS [None]
  - HYPERTROPHY [None]
  - PRURITUS [None]
  - SKIN NODULE [None]
  - SKIN REACTION [None]
  - SQUAMOUS CELL CARCINOMA [None]
